FAERS Safety Report 11679912 (Version 2)
Quarter: 2015Q4

REPORT INFORMATION
  Report Type: Spontaneous
  Country: US (occurrence: US)
  Receive Date: 20151027
  Receipt Date: 20151104
  Transmission Date: 20160304
  Serious: No
  Sender: FDA-Public Use
  Company Number: US-ELI_LILLY_AND_COMPANY-US201008006316

PATIENT
  Sex: Female

DRUGS (3)
  1. FORTEO [Suspect]
     Active Substance: TERIPARATIDE
     Dosage: 20 UG, DAILY (1/D)
     Dates: end: 20100819
  2. FORTEO [Suspect]
     Active Substance: TERIPARATIDE
     Dosage: 20 UG, DAILY (1/D)
  3. FORTEO [Suspect]
     Active Substance: TERIPARATIDE
     Indication: OSTEOPOROSIS
     Dosage: 20 UG, DAILY (1/D)
     Dates: start: 20100804

REACTIONS (11)
  - Paraesthesia [Recovered/Resolved]
  - Paranasal sinus hypersecretion [Unknown]
  - Malaise [Unknown]
  - Hypoaesthesia [Recovered/Resolved]
  - Vomiting [Unknown]
  - Oesophageal dilatation [Unknown]
  - Viral infection [Unknown]
  - Headache [Unknown]
  - Drug dose omission [Recovered/Resolved]
  - Asthenia [Unknown]
  - Nausea [Unknown]
